FAERS Safety Report 15605066 (Version 1)
Quarter: 2018Q4

REPORT INFORMATION
  Report Type: Spontaneous
  Country: NO (occurrence: NO)
  Receive Date: 20181112
  Receipt Date: 20181112
  Transmission Date: 20190205
  Serious: Yes (Disabling, Other)
  Sender: FDA-Public Use
  Company Number: NO-ACCORD-092074

PATIENT
  Age: 60 Year
  Sex: Male

DRUGS (3)
  1. METHOTREXATE. [Suspect]
     Active Substance: METHOTREXATE
     Indication: PHOTODERMATOSIS
     Route: 048
     Dates: start: 20161018, end: 20180129
  2. FOLSYRE NAF [Concomitant]
     Active Substance: FOLIC ACID
     Dosage: STRENGTH: 1 MG?1 MG 5 DAYS A WEEK
     Route: 048
  3. ULORIC [Concomitant]
     Active Substance: FEBUXOSTAT
     Indication: GOUT
     Route: 048

REACTIONS (2)
  - Off label use [Unknown]
  - Keratoconus [Not Recovered/Not Resolved]

NARRATIVE: CASE EVENT DATE: 20180130
